FAERS Safety Report 4644697-X (Version None)
Quarter: 2005Q2

REPORT INFORMATION
  Report Type: 
  Country: None (occurrence: None)
  Receive Date: 20050426
  Receipt Date: 20050412
  Transmission Date: 20051028
  Serious: Yes (Hospitalization)
  Sender: FDA-Public Use
  Company Number: FR-JNJFOC-20050404615

PATIENT
  Age: 20 Year
  Sex: Male

DRUGS (5)
  1. IXPRIM [Suspect]
     Indication: DRUG USE FOR UNKNOWN INDICATION
     Dosage: 20 TABLETS IN TOTAL.
     Route: 049
  2. DI ANTALVIC [Suspect]
     Route: 049
  3. DI ANTALVIC [Suspect]
     Indication: DRUG USE FOR UNKNOWN INDICATION
     Dosage: 10 CAPSULES IN TOTAL.
     Route: 049
  4. LODINE [Concomitant]
     Indication: DRUG USE FOR UNKNOWN INDICATION
     Route: 049
  5. BREXIN [Concomitant]
     Indication: DRUG USE FOR UNKNOWN INDICATION
     Route: 049

REACTIONS (2)
  - SUICIDE ATTEMPT [None]
  - VOMITING [None]
